FAERS Safety Report 5250858-1 (Version None)
Quarter: 2007Q1

REPORT INFORMATION
  Report Type: 
  Country: None (occurrence: None)
  Receive Date: 20070228
  Receipt Date: 20060816
  Transmission Date: 20070707
  Serious: No
  Sender: FDA-Public Use
  Company Number: US-GLAXOSMITHKLINE-A0612827A

PATIENT
  Age: 18 Year
  Sex: Female
  Weight: 51.4 kg

DRUGS (2)
  1. LAMICTAL [Suspect]
     Indication: BIPOLAR DISORDER
     Dosage: 100MG PER DAY
     Route: 048
     Dates: start: 20060401, end: 20060501
  2. NO CONCURRENT MEDICATION [Concomitant]

REACTIONS (7)
  - ANAL ULCER [None]
  - ERYTHEMA [None]
  - MOUTH ULCERATION [None]
  - PRURITUS GENITAL [None]
  - RASH [None]
  - SWELLING FACE [None]
  - VAGINAL LESION [None]
